FAERS Safety Report 4480643-X (Version None)
Quarter: 2004Q4

REPORT INFORMATION
  Report Type: 
  Country: None (occurrence: None)
  Receive Date: 20041019
  Receipt Date: 20041004
  Transmission Date: 20050328
  Serious: Yes (Hospitalization)
  Sender: FDA-Public Use
  Company Number: WAES 0410BRA00101

PATIENT
  Age: 60 Year
  Sex: Male

DRUGS (2)
  1. VIOXX [Suspect]
     Indication: OSTEOARTHRITIS
     Route: 048
     Dates: end: 20020101
  2. ALUMINUM HYDROXIDE (+) DIMETHICONE (+) M [Concomitant]

REACTIONS (2)
  - ECG SIGNS OF MYOCARDIAL ISCHAEMIA [None]
  - OESOPHAGITIS [None]
